FAERS Safety Report 8954282 (Version 1)
Quarter: 2012Q4

REPORT INFORMATION
  Report Type: Report from Study
  Country: US (occurrence: US)
  Receive Date: 20121207
  Receipt Date: 20121207
  Transmission Date: 20130627
  Serious: Yes (Other)
  Sender: FDA-Public Use
  Company Number: US-ROCHE-1154384

PATIENT
  Age: 77 Year
  Sex: Female
  Weight: 92 kg

DRUGS (2)
  1. BEVACIZUMAB [Suspect]
     Indication: OVARIAN EPITHELIAL CANCER
     Dosage: Date of last dose prior to SAE: 26/Oct/2012
     Route: 065
     Dates: start: 20120720, end: 20121109
  2. EVEROLIMUS [Suspect]
     Indication: OVARIAN EPITHELIAL CANCER
     Route: 065
     Dates: start: 20120720, end: 20121109

REACTIONS (2)
  - Hernia obstructive [Not Recovered/Not Resolved]
  - Hypertension [Not Recovered/Not Resolved]
